FAERS Safety Report 24728193 (Version 2)
Quarter: 2024Q4

REPORT INFORMATION
  Report Type: Spontaneous
  Country: CN (occurrence: CN)
  Receive Date: 20241212
  Receipt Date: 20241218
  Transmission Date: 20250115
  Serious: Yes (Hospitalization, Other)
  Sender: NOVARTIS
  Company Number: CN-002147023-NVSC2024CN233129

PATIENT
  Age: 37 Year
  Sex: Male

DRUGS (1)
  1. SACUBITRIL\VALSARTAN [Suspect]
     Active Substance: SACUBITRIL\VALSARTAN
     Indication: Cardiac failure chronic
     Dosage: 25 MG, QD
     Route: 048
     Dates: start: 20240620, end: 20241023

REACTIONS (18)
  - Dizziness [Unknown]
  - Chest discomfort [Unknown]
  - Tachypnoea [Unknown]
  - Tricuspid valve incompetence [Unknown]
  - Mitral valve incompetence [Unknown]
  - Aortic valve incompetence [Unknown]
  - Pulmonary fibrosis [Unknown]
  - Cardiomegaly [Unknown]
  - Left ventricular dysfunction [Unknown]
  - Perinephric oedema [Unknown]
  - Ejection fraction decreased [Unknown]
  - Arteriosclerosis [Unknown]
  - Pulmonary artery wall hypertrophy [Unknown]
  - Lymphadenopathy mediastinal [Unknown]
  - Cholelithiasis [Unknown]
  - Hepatic calcification [Unknown]
  - Bladder disorder [Unknown]
  - Pelvic fluid collection [Unknown]

NARRATIVE: CASE EVENT DATE: 20241003
